FAERS Safety Report 7496991-5 (Version None)
Quarter: 2011Q2

REPORT INFORMATION
  Report Type: 
  Country: None (occurrence: None)
  Receive Date: 20110516
  Receipt Date: 20110503
  Transmission Date: 20111010
  Serious: Yes (Death, Hospitalization)
  Sender: FDA-Public Use
  Company Number: 2011MA004920

PATIENT
  Age: 71 Year
  Sex: Male

DRUGS (4)
  1. VERAPAMIL HYDROCHLORIDE [Suspect]
     Dosage: 240 MG; QD
  2. ATENOLOL [Concomitant]
  3. METOPROLOL TARTRATE [Concomitant]
  4. DILTIAZEM [Concomitant]

REACTIONS (7)
  - DYSPNOEA [None]
  - TOXICITY TO VARIOUS AGENTS [None]
  - CARDIOGENIC SHOCK [None]
  - PALPITATIONS [None]
  - ATRIAL FIBRILLATION [None]
  - ASTHENIA [None]
  - VENTRICULAR HYPOKINESIA [None]
